FAERS Safety Report 6158729-3 (Version None)
Quarter: 2009Q2

REPORT INFORMATION
  Report Type: 
  Country: None (occurrence: None)
  Receive Date: 20090417
  Receipt Date: 20090410
  Transmission Date: 20091009
  Serious: Yes (Hospitalization)
  Sender: FDA-Public Use
  Company Number: A0779041A

PATIENT
  Age: 48 Year
  Sex: Female

DRUGS (12)
  1. AVANDIA [Suspect]
     Indication: DIABETES MELLITUS
     Dosage: 8MG PER DAY
     Route: 048
     Dates: start: 20000111, end: 20050101
  2. METFORMIN HCL [Concomitant]
  3. INSULIN [Concomitant]
  4. GLUCOTROL [Concomitant]
  5. FUROSEMIDE [Concomitant]
     Dates: start: 20040101
  6. HYDROCHLOROTHIAZIDE [Concomitant]
     Dates: start: 20040101
  7. ALPRAZOLAM [Concomitant]
  8. EFFEXOR [Concomitant]
  9. OXYCODONE HCL AND ACETAMINOPHEN [Concomitant]
  10. COMBIVENT [Concomitant]
  11. LEVOTHYROXINE SODIUM [Concomitant]
  12. ALBUTEROL [Concomitant]

REACTIONS (1)
  - MYOCARDIAL INFARCTION [None]
